FAERS Safety Report 9224706 (Version 3)
Quarter: 2013Q2

REPORT INFORMATION
  Report Type: Spontaneous
  Country: TR (occurrence: TR)
  Receive Date: 20130411
  Receipt Date: 20130516
  Transmission Date: 20140414
  Serious: Yes (Other)
  Sender: FDA-Public Use
  Company Number: TR-PFIZER INC-2013112607

PATIENT
  Age: 77 Year
  Sex: Male

DRUGS (8)
  1. DETRUSITOL SR [Suspect]
     Indication: URINARY INCONTINENCE
     Dosage: 4 MG, 1X/DAY
  2. DETRUSITOL SR [Suspect]
     Dosage: 2 MG, 1X/DAY
  3. DETRUSITOL SR [Suspect]
     Dosage: 4 MG, 1X/DAY
     Dates: end: 201304
  4. VASONEX [Concomitant]
     Indication: HYPERTENSION
     Dosage: 1.5 MG, 1X/DAY
  5. FLOMAX [Concomitant]
     Indication: URINARY INCONTINENCE
     Dosage: 4 MG, 1X/DAY
  6. COZAAR [Concomitant]
     Indication: HYPERTENSION
     Dosage: UNK
  7. KETOPROFEN [Concomitant]
     Dosage: UNK
  8. NEXIUM [Concomitant]
     Dosage: 20 MG, 1X/DAY

REACTIONS (4)
  - Hypotension [Recovered/Resolved]
  - Vertigo [Recovered/Resolved]
  - Asthenia [Recovered/Resolved]
  - Headache [Recovered/Resolved]
